FAERS Safety Report 14558890 (Version 1)
Quarter: 2018Q1

REPORT INFORMATION
  Report Type: Spontaneous
  Country: NL (occurrence: NL)
  Receive Date: 20180221
  Receipt Date: 20180221
  Transmission Date: 20180509
  Serious: Yes (Hospitalization)
  Sender: FDA-Public Use
  Company Number: NL-UCBSA-2018007782

PATIENT
  Age: 16 Year
  Sex: Female

DRUGS (1)
  1. METHYLPHENIDATE HYDROCHLORIDE. [Suspect]
     Active Substance: METHYLPHENIDATE HYDROCHLORIDE
     Indication: PRODUCT USED FOR UNKNOWN INDICATION
     Dosage: 3.9 MG/KG, DAILY
     Route: 048

REACTIONS (4)
  - Toxicity to various agents [Unknown]
  - Agitation [Unknown]
  - Aggression [Unknown]
  - Apathy [Unknown]
